FAERS Safety Report 11922216 (Version 7)
Quarter: 2016Q3

REPORT INFORMATION
  Report Type: Spontaneous
  Country: AR (occurrence: AR)
  Receive Date: 20160115
  Receipt Date: 20160908
  Transmission Date: 20161109
  Serious: Yes (Hospitalization, Other)
  Sender: FDA-Public Use
  Company Number: AR-PFIZER INC-2016016866

PATIENT
  Age: 70 Year
  Sex: Male

DRUGS (2)
  1. SUTENT [Suspect]
     Active Substance: SUNITINIB MALATE
     Indication: METASTATIC RENAL CELL CARCINOMA
     Dosage: 50 MG, CYCLIC (4/2 SCHEME)
     Dates: start: 20150828, end: 20160129
  2. UROPRAN [Concomitant]
     Dosage: UNK
     Dates: start: 2015

REACTIONS (5)
  - Hernia [Recovered/Resolved]
  - Wound [Recovered/Resolved]
  - Condition aggravated [Recovered/Resolved]
  - Infection [Recovered/Resolved]
  - Intestinal fistula [Recovered/Resolved]

NARRATIVE: CASE EVENT DATE: 20160105
